FAERS Safety Report 7735679-X (Version None)
Quarter: 2011Q3

REPORT INFORMATION
  Report Type: 
  Country: None (occurrence: None)
  Receive Date: 20110907
  Receipt Date: 20110825
  Transmission Date: 20111222
  Serious: Yes (Other)
  Sender: FDA-Public Use
  Company Number: US-CELGENEUS-163-21880-11072152

PATIENT
  Sex: Male

DRUGS (4)
  1. ASPIRIN [Concomitant]
     Dosage: 81 MILLIGRAM
     Route: 065
     Dates: end: 20110711
  2. LEUKERAN [Concomitant]
     Dosage: 10 MILLIGRAM
     Route: 065
     Dates: start: 20110611, end: 20110711
  3. PREDNISONE [Concomitant]
     Dosage: 100 MILLIGRAM
     Route: 065
     Dates: start: 20110601, end: 20110711
  4. REVLIMID [Suspect]
     Indication: MYCOSIS FUNGOIDES
     Dosage: 25 MILLIGRAM
     Route: 048
     Dates: start: 20110716, end: 20110730

REACTIONS (3)
  - ASTHENIA [None]
  - SKIN ULCER HAEMORRHAGE [None]
  - OEDEMA [None]
